FAERS Safety Report 4831204-1 (Version None)
Quarter: 2005Q4

REPORT INFORMATION
  Report Type: 
  Country: None (occurrence: None)
  Receive Date: 20051118
  Receipt Date: 20051114
  Transmission Date: 20060501
  Serious: Yes (Death)
  Sender: FDA-Public Use
  Company Number: 2005CG01892

PATIENT
  Age: 20 Month
  Sex: Female

DRUGS (7)
  1. PULMICORT [Suspect]
     Indication: BRONCHITIS
     Route: 055
     Dates: start: 20051013, end: 20051015
  2. SURBRONC [Suspect]
     Indication: BRONCHITIS
     Route: 055
     Dates: start: 20051013, end: 20051015
  3. COQUELUSEDAL [Concomitant]
     Dates: start: 20051006
  4. ZITHROMAX [Concomitant]
     Dates: start: 20051006
  5. BRONCHOKOD [Concomitant]
     Dates: start: 20051006
  6. CIBLOR [Concomitant]
     Dates: start: 20050828
  7. CELESTENE [Concomitant]
     Dates: start: 20050828

REACTIONS (9)
  - ABDOMINAL PAIN [None]
  - AGITATION [None]
  - CARDIO-RESPIRATORY ARREST [None]
  - CEREBRAL ISCHAEMIA [None]
  - HALLUCINATION, VISUAL [None]
  - HYPOTONIA [None]
  - INSOMNIA [None]
  - MYDRIASIS [None]
  - RESPIRATORY DISTRESS [None]
